FAERS Safety Report 8989241 (Version 1)
Quarter: 2012Q4

REPORT INFORMATION
  Report Type: Spontaneous
  Country: GB (occurrence: None)
  Receive Date: 20121219
  Receipt Date: 20121219
  Transmission Date: 20130627
  Serious: Yes (Death, Hospitalization)
  Sender: FDA-Public Use
  Company Number: AUR-APL-2012-05412

PATIENT
  Age: 55 Year
  Sex: Male

DRUGS (3)
  1. SIMVASTATIN (SIMVASTATIN) [Suspect]
     Indication: BLOOD CHOLESTEROL
     Dates: end: 200804
  2. ATORVASTATIN [Suspect]
     Indication: BLOOD CHOLESTEROL
     Dates: end: 200804
  3. EZETIMIBE [Suspect]
     Indication: BLOOD CHOLESTEROL
     Dates: end: 200804

REACTIONS (30)
  - Muscle spasms [None]
  - Neck pain [None]
  - Musculoskeletal pain [None]
  - Pain [None]
  - Hypotonia [None]
  - Alopecia [None]
  - Anxiety [None]
  - Psychiatric symptom [None]
  - Blood cholesterol increased [None]
  - Depression [None]
  - Fatigue [None]
  - Asthenia [None]
  - Fatigue [None]
  - Dyspnoea [None]
  - Back pain [None]
  - Dysphonia [None]
  - Asphyxia [None]
  - Chromaturia [None]
  - Muscle atrophy [None]
  - Muscular weakness [None]
  - Muscle twitching [None]
  - Emotional poverty [None]
  - Muscle contractions involuntary [None]
  - Myopathy [None]
  - Rash pruritic [None]
  - Cough [None]
  - Insomnia [None]
  - Dyspnoea [None]
  - Posture abnormal [None]
  - Motor neurone disease [None]
